FAERS Safety Report 10548042 (Version 2)
Quarter: 2014Q4

REPORT INFORMATION
  Report Type: Spontaneous
  Country: DE (occurrence: DE)
  Receive Date: 20141028
  Receipt Date: 20141031
  Transmission Date: 20150529
  Serious: Yes (Death)
  Sender: FDA-Public Use
  Company Number: PHHY2014DE137389

PATIENT
  Sex: Male

DRUGS (2)
  1. SOM230 [Suspect]
     Active Substance: PASIREOTIDE
     Indication: OFF LABEL USE
  2. SOM230 [Suspect]
     Active Substance: PASIREOTIDE
     Indication: CARCINOID SYNDROME
     Dosage: 60 MG, ONCE/SINGLE
     Route: 030
     Dates: start: 20141002, end: 20141002

REACTIONS (1)
  - Carcinoid syndrome [Fatal]
